FAERS Safety Report 4766830-1 (Version None)
Quarter: 2005Q3

REPORT INFORMATION
  Report Type: 
  Country: None (occurrence: None)
  Receive Date: 20050908
  Receipt Date: 20050825
  Transmission Date: 20060218
  Serious: Yes (Disabling, Other)
  Sender: FDA-Public Use
  Company Number: MC200500303

PATIENT
  Age: 77 Year
  Sex: Female

DRUGS (10)
  1. ANGIOMAX [Suspect]
     Dosage: SEE IMAGE
     Route: 040
     Dates: start: 20050324, end: 20050324
  2. LIPITOR [Concomitant]
  3. PREDNISONE [Concomitant]
  4. ASACOL [Concomitant]
  5. ZOLOFT [Concomitant]
  6. LOPRESSOR [Concomitant]
  7. IKSORDIL (ISOSORBIDE DINITRATE) [Concomitant]
  8. ZESTRIL [Concomitant]
  9. DYAZIDE (TRIAMTERENE, HYDROCHLOROTHIAZIDE) [Concomitant]
  10. NITROGLYCERIN ^A.L.^ (GLYCERYL TRINITRATE) [Concomitant]

REACTIONS (6)
  - CARDIAC PROCEDURE COMPLICATION [None]
  - DYSARTHRIA [None]
  - EMBOLIC STROKE [None]
  - FACIAL PALSY [None]
  - HEADACHE [None]
  - INFUSION RELATED REACTION [None]
